FAERS Safety Report 5964895-2 (Version None)
Quarter: 2008Q4

REPORT INFORMATION
  Report Type: 
  Country: None (occurrence: None)
  Receive Date: 20081121
  Receipt Date: 20081105
  Transmission Date: 20090506
  Serious: Yes (Hospitalization, Disabling, Other)
  Sender: FDA-Public Use
  Company Number: 2008S1019935

PATIENT
  Sex: Female

DRUGS (1)
  1. AMNESTEEM [Suspect]

REACTIONS (3)
  - INFLAMMATORY BOWEL DISEASE [None]
  - MULTIPLE INJURIES [None]
  - RECTAL HAEMORRHAGE [None]
